FAERS Safety Report 20757869 (Version 1)
Quarter: 2022Q2

REPORT INFORMATION
  Report Type: Spontaneous
  Country: CN (occurrence: CN)
  Receive Date: 20220427
  Receipt Date: 20220427
  Transmission Date: 20220721
  Serious: Yes (Other)
  Sender: FDA-Public Use
  Company Number: CN-PFIZER INC-202200611369

PATIENT
  Age: 64 Year
  Sex: Male
  Weight: 65 kg

DRUGS (1)
  1. METHYLPREDNISOLONE SODIUM SUCCINATE [Suspect]
     Active Substance: METHYLPREDNISOLONE SODIUM SUCCINATE
     Indication: Drug therapy
     Dosage: 0.5 G, 12 TIMES/DAY
     Route: 041
     Dates: start: 20220410, end: 20220411

REACTIONS (2)
  - Nausea [Recovered/Resolved]
  - Merycism [Recovered/Resolved]

NARRATIVE: CASE EVENT DATE: 20220410
